FAERS Safety Report 9999150 (Version 2)
Quarter: 2014Q1

REPORT INFORMATION
  Report Type: Spontaneous
  Country: FR (occurrence: FR)
  Receive Date: 20140312
  Receipt Date: 20140320
  Transmission Date: 20141002
  Serious: Yes (Other)
  Sender: FDA-Public Use
  Company Number: FR-JNJFOC-20140305509

PATIENT
  Age: 80 Year
  Sex: Male

DRUGS (4)
  1. CONTRAMAL L.P. [Suspect]
     Indication: PAIN
     Route: 048
     Dates: start: 20140206, end: 20140206
  2. CONTRAMAL L.P. [Suspect]
     Indication: PAIN
     Route: 048
     Dates: start: 20140203, end: 20140210
  3. TAVANIC [Suspect]
     Indication: ARTHRITIS
     Route: 048
     Dates: start: 20140105, end: 20140212
  4. IXPRIM [Concomitant]
     Indication: PAIN
     Route: 048
     Dates: start: 20140131, end: 20140202

REACTIONS (3)
  - Hallucination [Recovering/Resolving]
  - Confusional state [Recovering/Resolving]
  - Renal failure acute [Recovered/Resolved]
